FAERS Safety Report 19871981 (Version 1)
Quarter: 2021Q3

REPORT INFORMATION
  Report Type: Spontaneous
  Country: FR (occurrence: FR)
  Receive Date: 20210923
  Receipt Date: 20210923
  Transmission Date: 20211014
  Serious: Yes (Other)
  Sender: FDA-Public Use
  Company Number: FR-GLAXOSMITHKLINE-FR2021198086

PATIENT
  Age: 4 Year
  Weight: 31 kg

DRUGS (1)
  1. VENTOLINE [Suspect]
     Active Substance: ALBUTEROL
     Indication: ASTHMA
     Dosage: 10 PUFF(S), TID, 100 ?G
     Route: 055

REACTIONS (3)
  - Overdose [Unknown]
  - Prescribed overdose [Unknown]
  - Asthmatic crisis [Unknown]
